FAERS Safety Report 7141087-5 (Version None)
Quarter: 2010Q4

REPORT INFORMATION
  Report Type: 
  Country: None (occurrence: None)
  Receive Date: 20101201
  Receipt Date: 20101201
  Transmission Date: 20110411
  Serious: Yes (Hospitalization)
  Sender: FDA-Public Use
  Company Number: None

PATIENT
  Age: 61 Year
  Sex: Male
  Weight: 81 kg

DRUGS (1)
  1. PHENYTOIN [Suspect]
     Dosage: 100 MG BID PO
     Route: 048
     Dates: start: 20091204, end: 20101128

REACTIONS (3)
  - ABASIA [None]
  - ASTHENIA [None]
  - LETHARGY [None]
